FAERS Safety Report 9095610 (Version 1)
Quarter: 2013Q1

REPORT INFORMATION
  Report Type: Spontaneous
  Country: GB (occurrence: GB)
  Receive Date: 20130219
  Receipt Date: 20130219
  Transmission Date: 20140127
  Serious: Yes (Other)
  Sender: FDA-Public Use
  Company Number: GB-MYLANLABS-2013S1002749

PATIENT
  Sex: Female

DRUGS (5)
  1. CITALOPRAM [Suspect]
     Indication: PRODUCT USED FOR UNKNOWN INDICATION
  2. TEMAZEPAM [Interacting]
     Indication: PRODUCT USED FOR UNKNOWN INDICATION
  3. ZOPICLONE [Interacting]
     Indication: PRODUCT USED FOR UNKNOWN INDICATION
  4. DIAZEPAM [Interacting]
     Indication: PRODUCT USED FOR UNKNOWN INDICATION
  5. LORAZEPAM [Suspect]
     Indication: PRODUCT USED FOR UNKNOWN INDICATION

REACTIONS (7)
  - Anxiety [Unknown]
  - Drug interaction [Unknown]
  - Incorrect dose administered [Unknown]
  - Insomnia [Unknown]
  - Medication error [Unknown]
  - Somnolence [Unknown]
  - Hyperhidrosis [Unknown]
